FAERS Safety Report 4627542-8 (Version None)
Quarter: 2005Q2

REPORT INFORMATION
  Report Type: 
  Country: None (occurrence: None)
  Receive Date: 20050405
  Receipt Date: 20050321
  Transmission Date: 20051028
  Serious: Yes (Other)
  Sender: FDA-Public Use
  Company Number: 2005037002

PATIENT
  Age: 79 Year
  Sex: Female
  Weight: 72.5755 kg

DRUGS (4)
  1. CELEBREX [Suspect]
     Indication: ARTHRITIS
     Dosage: 200 MG (200 MG, 1 IN 1 D), ORAL
     Route: 048
     Dates: start: 20041001, end: 20050101
  2. OMEPRAZOLE [Concomitant]
  3. HYDROCHLOROTHIAZIDE [Concomitant]
  4. ALENDORNATE SODIUM (ALENDRONATE SODIUM) [Concomitant]

REACTIONS (3)
  - OEDEMA PERIPHERAL [None]
  - OSTEOARTHRITIS [None]
  - POST PROCEDURAL COMPLICATION [None]
